FAERS Safety Report 15459812 (Version 1)
Quarter: 2018Q4

REPORT INFORMATION
  Report Type: Spontaneous
  Country: US (occurrence: US)
  Receive Date: 20181003
  Receipt Date: 20181003
  Transmission Date: 20190204
  Serious: Yes (Other)
  Sender: FDA-Public Use
  Company Number: US-GENERICUS, INC.-2018GNR00006

PATIENT
  Age: 21 Year
  Sex: Female

DRUGS (14)
  1. TOBI [Concomitant]
     Active Substance: TOBRAMYCIN
  2. CEFTAZIDIME. [Concomitant]
     Active Substance: CEFTAZIDIME
  3. ALBUTEROL. [Concomitant]
     Active Substance: ALBUTEROL
  4. PREVACID [Concomitant]
     Active Substance: LANSOPRAZOLE
  5. SODIUM CHLOR NEB [Concomitant]
  6. PULMOZYME [Concomitant]
     Active Substance: DORNASE ALFA
  7. MULTI-VITAMIN [Concomitant]
     Active Substance: .ALPHA.-TOCOPHEROL ACETATE, DL-\ASCORBIC ACID\CYANOCOBALAMIN\FLUORIDE ION\FOLIC ACID\NIACIN\PYRIDOXINE\RIBOFLAVIN\THIAMINE\VITAMIN A\VITAMIN D
  8. ALTACE [Concomitant]
     Active Substance: RAMIPRIL
  9. PULMICORT TURBUHALER [Concomitant]
     Active Substance: BUDESONIDE
  10. SINGULAIR [Concomitant]
     Active Substance: MONTELUKAST SODIUM
  11. VITAMIN D [Concomitant]
     Active Substance: CHOLECALCIFEROL
  12. CAYSTON [Concomitant]
     Active Substance: AZTREONAM
  13. TOBRAMYCIN. [Suspect]
     Active Substance: TOBRAMYCIN
     Indication: CYSTIC FIBROSIS
     Dosage: 5 ML, 2X/DAY
  14. SYMDEKO [Concomitant]
     Active Substance: IVACAFTOR\TEZACAFTOR

REACTIONS (1)
  - Hand fracture [Not Recovered/Not Resolved]

NARRATIVE: CASE EVENT DATE: 20180916
